FAERS Safety Report 7275840-4 (Version None)
Quarter: 2011Q1

REPORT INFORMATION
  Report Type: 
  Country: None (occurrence: None)
  Receive Date: 20110202
  Receipt Date: 20110202
  Transmission Date: 20110831
  Serious: No
  Sender: FDA-Public Use
  Company Number: None

PATIENT

DRUGS (1)
  1. TRIAD GROUP ALCOHOL PREP PRODUCTS [Suspect]

REACTIONS (5)
  - POLYURIA [None]
  - SINUS CONGESTION [None]
  - FEELING COLD [None]
  - OEDEMA PERIPHERAL [None]
  - DIARRHOEA [None]
